FAERS Safety Report 7744805-8 (Version None)
Quarter: 2011Q3

REPORT INFORMATION
  Report Type: 
  Country: None (occurrence: None)
  Receive Date: 20110912
  Receipt Date: 20110912
  Transmission Date: 20111222
  Serious: Yes (Life-Threatening)
  Sender: FDA-Public Use
  Company Number: None

PATIENT
  Age: 67 Year
  Sex: Female
  Weight: 88.904 kg

DRUGS (1)
  1. AMOXICILLIN [Suspect]
     Indication: SINUSITIS
     Dosage: TWO CAPSULES
     Dates: start: 20110829, end: 20110902

REACTIONS (8)
  - DECREASED APPETITE [None]
  - PYREXIA [None]
  - MALAISE [None]
  - INCORRECT DOSE ADMINISTERED [None]
  - SOMNOLENCE [None]
  - ASTHENIA [None]
  - STOMATITIS [None]
  - LISTLESS [None]
